FAERS Safety Report 11398378 (Version 2)
Quarter: 2015Q3

REPORT INFORMATION
  Report Type: Spontaneous
  Country: US (occurrence: US)
  Receive Date: 20150820
  Receipt Date: 20150911
  Transmission Date: 20151125
  Serious: Yes (Hospitalization)
  Sender: FDA-Public Use
  Company Number: US-009507513-1508USA006871

PATIENT
  Age: 14 Year
  Sex: Female

DRUGS (1)
  1. DULERA [Suspect]
     Active Substance: FORMOTEROL FUMARATE DIHYDRATE\MOMETASONE FUROATE
     Dosage: 400 MCG, 2 PUFFS, TWICE DAILY
     Route: 055

REACTIONS (2)
  - Product quality issue [Unknown]
  - Migraine [Unknown]

NARRATIVE: CASE EVENT DATE: 20150810
